FAERS Safety Report 7876538-1 (Version None)
Quarter: 2011Q4

REPORT INFORMATION
  Report Type: 
  Country: None (occurrence: None)
  Receive Date: 20111031
  Receipt Date: 20111019
  Transmission Date: 20120403
  Serious: Yes (Other)
  Sender: FDA-Public Use
  Company Number: US-ELI_LILLY_AND_COMPANY-US201110006491

PATIENT

DRUGS (2)
  1. HUMULIN 70/30 [Suspect]
     Dosage: UNK, UNKNOWN
     Route: 064
  2. HUMULIN 70/30 [Suspect]
     Dosage: UNK, UNKNOWN
     Route: 064

REACTIONS (2)
  - MATERNAL EXPOSURE DURING PREGNANCY [None]
  - SPINA BIFIDA [None]
